FAERS Safety Report 23669949 (Version 1)
Quarter: 2024Q1

REPORT INFORMATION
  Report Type: Spontaneous
  Country: US (occurrence: US)
  Receive Date: 20240325
  Receipt Date: 20240325
  Transmission Date: 20240409
  Serious: No
  Sender: FDA-Public Use
  Company Number: US-PFIZER INC-202400070520

PATIENT
  Age: 92 Year
  Sex: Male
  Weight: 65.77 kg

DRUGS (1)
  1. PAXLOVID [Suspect]
     Active Substance: NIRMATRELVIR\RITONAVIR
     Indication: COVID-19 pneumonia
     Dosage: 2 NIRMATRELVIR TABLETS AND 1 RITONAVIR TABLET TOGETHER DAILY
     Route: 048
     Dates: start: 20240101, end: 20240103

REACTIONS (5)
  - Dysstasia [Recovered/Resolved]
  - Dyspepsia [Recovered/Resolved]
  - General physical health deterioration [Unknown]
  - Feeding disorder [Unknown]
  - Off label use [Unknown]

NARRATIVE: CASE EVENT DATE: 20240101
